FAERS Safety Report 8271369-5 (Version None)
Quarter: 2012Q2

REPORT INFORMATION
  Report Type: 
  Country: None (occurrence: None)
  Receive Date: 20120410
  Receipt Date: 20120126
  Transmission Date: 20120825
  Serious: No
  Sender: FDA-Public Use
  Company Number: US-NOVEN-12US004004

PATIENT
  Sex: Male

DRUGS (2)
  1. TRAZODONE HCL [Concomitant]
     Indication: INSOMNIA
     Dosage: ONE TABLET
     Route: 048
  2. FENTANYL CITRATE [Suspect]
     Indication: BACK PAIN
     Dosage: 50 UG/HR Q 72HRS
     Route: 062
     Dates: start: 20120101

REACTIONS (1)
  - INADEQUATE ANALGESIA [None]
